FAERS Safety Report 16338282 (Version 1)
Quarter: 2019Q2

REPORT INFORMATION
  Report Type: Report from Study
  Country: BR (occurrence: BR)
  Receive Date: 20190521
  Receipt Date: 20190521
  Transmission Date: 20190711
  Serious: Yes (Hospitalization, Other)
  Sender: FDA-Public Use
  Company Number: BR-JNJFOC-20181101318

PATIENT
  Age: 34 Year
  Sex: Male

DRUGS (2)
  1. MORPHINE [Concomitant]
     Active Substance: MORPHINE
     Route: 065
  2. STELARA [Suspect]
     Active Substance: USTEKINUMAB
     Indication: CROHN^S DISEASE
     Route: 058
     Dates: start: 20181010

REACTIONS (7)
  - Anaemia [Unknown]
  - Blood uric acid increased [Unknown]
  - Weight increased [Unknown]
  - Nephrolithiasis [Not Recovered/Not Resolved]
  - Inflammation [Unknown]
  - Lymphoma [Unknown]
  - Gastrointestinal inflammation [Unknown]

NARRATIVE: CASE EVENT DATE: 2018
